FAERS Safety Report 24625789 (Version 1)
Quarter: 2024Q4

REPORT INFORMATION
  Report Type: Spontaneous
  Country: US (occurrence: US)
  Receive Date: 20241115
  Receipt Date: 20241115
  Transmission Date: 20250114
  Serious: No
  Sender: ANI
  Company Number: US-ANIPHARMA-2024-US-046089

PATIENT
  Age: 55 Year
  Sex: Female

DRUGS (1)
  1. CORTICOTROPIN [Suspect]
     Active Substance: CORTICOTROPIN
     Indication: Product used for unknown indication
     Dosage: 80 UNITS (1ML) TWICE WEEKLY
     Route: 030
     Dates: start: 20240524, end: 20240823

REACTIONS (4)
  - Renal pain [Unknown]
  - Abnormal weight gain [Unknown]
  - Hypomagnesaemia [Unknown]
  - Hypokalaemia [Unknown]
